FAERS Safety Report 11603584 (Version 1)
Quarter: 2015Q4

REPORT INFORMATION
  Report Type: Spontaneous
  Country: US (occurrence: None)
  Receive Date: 20151006
  Receipt Date: 20151006
  Transmission Date: 20160304
  Serious: No
  Sender: FDA-Public Use
  Company Number: None

PATIENT
  Age: 47 Year
  Sex: Female

DRUGS (1)
  1. STIVARGA [Suspect]
     Active Substance: REGORAFENIB
     Indication: RECTAL CANCER
     Route: 048
     Dates: start: 20150925, end: 20151005

REACTIONS (5)
  - Dysphonia [None]
  - Contusion [None]
  - Abdominal pain [None]
  - Liver function test abnormal [None]
  - Fatigue [None]

NARRATIVE: CASE EVENT DATE: 20151005
